FAERS Safety Report 10017994 (Version 1)
Quarter: 2014Q1

REPORT INFORMATION
  Report Type: Spontaneous
  Country: US (occurrence: US)
  Receive Date: 20140318
  Receipt Date: 20140318
  Transmission Date: 20141002
  Serious: Yes (Other)
  Sender: FDA-Public Use
  Company Number: US-BRISTOL-MYERS SQUIBB COMPANY-20396792

PATIENT
  Age: 64 Year
  Sex: Female
  Weight: 80.72 kg

DRUGS (2)
  1. ELIQUIS [Suspect]
     Dosage: INT:SEP 13 (3 DAYS IN A WK)
     Dates: start: 2013
  2. COUMADIN [Suspect]
     Dates: start: 2013, end: 201401

REACTIONS (2)
  - Cardiac ablation [None]
  - Muscle spasms [Not Recovered/Not Resolved]
